FAERS Safety Report 6901033-3 (Version None)
Quarter: 2010Q3

REPORT INFORMATION
  Report Type: 
  Country: None (occurrence: None)
  Receive Date: 20100803
  Receipt Date: 20100720
  Transmission Date: 20110219
  Serious: Yes (Hospitalization, Other)
  Sender: FDA-Public Use
  Company Number: PHHY2010JP17432

PATIENT
  Age: 60 Year
  Sex: Female

DRUGS (8)
  1. ZOMETA [Suspect]
     Indication: METASTASES TO BONE
     Dosage: 4 MG, UNK
     Route: 041
     Dates: start: 20061201, end: 20090901
  2. ZOMETA [Suspect]
     Dosage: UNK
     Route: 041
     Dates: start: 20100405
  3. ZOMETA [Suspect]
     Dosage: UNK
     Route: 041
     Dates: start: 20100426
  4. ZOMETA [Suspect]
     Dosage: UNK
     Route: 041
     Dates: start: 20100621
  5. AREDIA [Suspect]
     Indication: METASTASES TO BONE
     Dosage: UNK
     Route: 041
     Dates: start: 20061101, end: 20061201
  6. AREDIA [Suspect]
     Dosage: UNK
     Dates: start: 20090901, end: 20100401
  7. CYCLOPHOSPHAMIDE [Concomitant]
     Indication: BREAST CANCER
     Dosage: UNK
     Dates: end: 20100315
  8. XELODA [Concomitant]
     Dosage: UNK
     Dates: end: 20100315

REACTIONS (11)
  - BLOOD AMYLASE INCREASED [None]
  - CARBOHYDRATE ANTIGEN 15-3 INCREASED [None]
  - CARCINOEMBRYONIC ANTIGEN INCREASED [None]
  - CATHETER SITE RELATED REACTION [None]
  - MALIGNANT NEOPLASM PROGRESSION [None]
  - METASTASES TO BONE [None]
  - METASTASES TO LIVER [None]
  - METASTASES TO LUNG [None]
  - PANCREATITIS ACUTE [None]
  - PYREXIA [None]
  - WHITE BLOOD CELL COUNT DECREASED [None]
